FAERS Safety Report 9109641 (Version 1)
Quarter: 2013Q1

REPORT INFORMATION
  Report Type: Spontaneous
  Country: US (occurrence: US)
  Receive Date: 20130222
  Receipt Date: 20130222
  Transmission Date: 20140127
  Serious: No
  Sender: FDA-Public Use
  Company Number: US-PFIZER INC-2013065251

PATIENT
  Age: 70 Year
  Sex: Male

DRUGS (6)
  1. SUTENT [Suspect]
     Indication: RENAL NEOPLASM
     Dosage: 50 MG, UNK
     Dates: start: 20130219
  2. ALEVE [Concomitant]
     Dosage: UNK
  3. ALKA-SELTZER HEARTBURN RELIEF [Concomitant]
     Dosage: UNK
  4. ATENOLOL [Concomitant]
     Dosage: UNK
  5. OXYCODONE HYDROCHLORIDE [Concomitant]
     Dosage: UNK
  6. TUMS ULTRA [Concomitant]
     Dosage: UNK, (1000)

REACTIONS (4)
  - Fatigue [Unknown]
  - Diarrhoea [Unknown]
  - Erythema [Unknown]
  - Rash [Unknown]
